FAERS Safety Report 4841186-4 (Version None)
Quarter: 2005Q4

REPORT INFORMATION
  Report Type: 
  Country: None (occurrence: None)
  Receive Date: 20051130
  Receipt Date: 20051025
  Transmission Date: 20060501
  Serious: Yes (Hospitalization)
  Sender: FDA-Public Use
  Company Number: US-BRISTOL-MYERS SQUIBB COMPANY-13157391

PATIENT
  Age: 12 Year
  Sex: Male
  Weight: 59 kg

DRUGS (3)
  1. ABILIFY [Suspect]
     Indication: BIPOLAR DISORDER
     Route: 048
     Dates: start: 20051020
  2. ADDERALL XR 10 [Concomitant]
  3. EFFEXOR XR [Concomitant]

REACTIONS (4)
  - DYSTONIA [None]
  - HEADACHE [None]
  - MUSCLE SPASMS [None]
  - TORTICOLLIS [None]
